FAERS Safety Report 13741758 (Version 2)
Quarter: 2017Q3

REPORT INFORMATION
  Report Type: Spontaneous
  Country: CA (occurrence: CA)
  Receive Date: 20170711
  Receipt Date: 20170727
  Transmission Date: 20171127
  Serious: Yes (Other)
  Sender: FDA-Public Use
  Company Number: CA-PFIZER INC-2017295931

PATIENT
  Age: 25 Year
  Sex: Male

DRUGS (2)
  1. SOMATULINE /01330101/ [Suspect]
     Active Substance: LANREOTIDE ACETATE
     Dosage: 120 MG, MONTHLY
     Route: 030
  2. CORTEF [Suspect]
     Active Substance: HYDROCORTISONE
     Dosage: 5 MG, 2X/DAY (5 MG AM AND 5 MG PM)
     Route: 048

REACTIONS (3)
  - Thyroid mass [Unknown]
  - Acromegaly [Unknown]
  - Prostatic mass [Unknown]

NARRATIVE: CASE EVENT DATE: 2016
